FAERS Safety Report 9839137 (Version 1)
Quarter: 2014Q1

REPORT INFORMATION
  Report Type: Spontaneous
  Country: GB (occurrence: None)
  Receive Date: 20140116
  Receipt Date: 20140116
  Transmission Date: 20141002
  Serious: Yes (Other)
  Sender: FDA-Public Use
  Company Number: GB-DEXPHARM-20140001

PATIENT
  Age: 80 Year
  Sex: Male

DRUGS (2)
  1. OMEPRAZOLE [Suspect]
     Route: 048
     Dates: start: 20131104, end: 20131107
  2. SIMVASTATIN [Concomitant]

REACTIONS (1)
  - Dizziness [None]
